FAERS Safety Report 5570995-1 (Version None)
Quarter: 2007Q4

REPORT INFORMATION
  Report Type: 
  Country: None (occurrence: None)
  Receive Date: 20071221
  Receipt Date: 20071218
  Transmission Date: 20080405
  Serious: No
  Sender: FDA-Public Use
  Company Number: US-JNJFOC-20071204894

PATIENT
  Sex: Female
  Weight: 124.74 kg

DRUGS (6)
  1. INVEGA [Suspect]
     Indication: DEPRESSION
     Route: 048
     Dates: start: 20070601, end: 20071212
  2. INVEGA [Suspect]
     Indication: BIPOLAR DISORDER
     Route: 048
     Dates: start: 20070601, end: 20071212
  3. ATENOLOL [Concomitant]
     Indication: HEART RATE INCREASED
     Route: 048
  4. KLONOPIN [Concomitant]
     Indication: ANXIETY
     Route: 048
  5. ADDERALL 10 [Concomitant]
  6. LEVOXYL [Concomitant]
     Indication: HYPOTHYROIDISM
     Route: 048

REACTIONS (4)
  - AMENORRHOEA [None]
  - ANGER [None]
  - BLOOD PROLACTIN INCREASED [None]
  - WEIGHT INCREASED [None]
